FAERS Safety Report 4478560-4 (Version None)
Quarter: 2004Q4

REPORT INFORMATION
  Report Type: 
  Country: None (occurrence: None)
  Receive Date: 20041019
  Receipt Date: 20040928
  Transmission Date: 20050328
  Serious: Yes (Other)
  Sender: FDA-Public Use
  Company Number: JP-BRISTOL-MYERS SQUIBB COMPANY-12723102

PATIENT
  Age: 68 Year
  Sex: Male

DRUGS (7)
  1. GATIFLO TABS 100 MG [Suspect]
     Indication: BRONCHITIS ACUTE
     Route: 048
     Dates: start: 20040526, end: 20040528
  2. SOLETON [Suspect]
     Dosage: DOSAGE FORM: TABLET
     Route: 048
  3. ALLELOCK [Concomitant]
     Route: 048
     Dates: start: 20040526, end: 20040528
  4. MUCOSTA [Concomitant]
     Route: 048
     Dates: start: 20040526, end: 20040528
  5. DEQUALINIUM CHLORIDE [Concomitant]
     Route: 048
     Dates: start: 20040526, end: 20040528
  6. MARZULENE-S [Concomitant]
     Route: 048
  7. MYONAL [Concomitant]
     Dosage: DOSAGE FORM: TABLET
     Route: 048

REACTIONS (3)
  - ANAEMIA [None]
  - GASTRIC ULCER HAEMORRHAGE [None]
  - PLATELET COUNT INCREASED [None]
